FAERS Safety Report 9019484 (Version 1)
Quarter: 2013Q1

REPORT INFORMATION
  Report Type: Spontaneous
  Country: EC (occurrence: EC)
  Receive Date: 20130118
  Receipt Date: 20130118
  Transmission Date: 20140127
  Serious: Yes (Other)
  Sender: FDA-Public Use
  Company Number: PHHY2013EC004598

PATIENT
  Sex: Female

DRUGS (1)
  1. TEGRETOL CR [Suspect]
     Indication: CONVULSION
     Dosage: 600 MG, (400 MG AM AND 200 MG PM)
     Route: 048
     Dates: start: 2003

REACTIONS (3)
  - Head injury [Recovered/Resolved]
  - Convulsion [Recovered/Resolved]
  - Disorientation [None]
